FAERS Safety Report 14711361 (Version 3)
Quarter: 2019Q1

REPORT INFORMATION
  Report Type: Spontaneous
  Country: US (occurrence: US)
  Receive Date: 20180403
  Receipt Date: 20190115
  Transmission Date: 20190417
  Serious: Yes (Hospitalization, Other)
  Sender: FDA-Public Use
  Company Number: US-PFIZER INC-2016542172

PATIENT
  Age: 77 Year
  Sex: Male
  Weight: 77 kg

DRUGS (12)
  1. REVATIO [Suspect]
     Active Substance: SILDENAFIL CITRATE
     Dosage: 4 DF, DAILY (4 TABLETS A DAY, ONE IN THE MORNING, ONE IN THE AFTERNOON, TWO AT NIGHT)
  2. METOPROLOL SUCC ER [Concomitant]
     Active Substance: METOPROLOL SUCCINATE
     Indication: CARDIAC DISORDER
     Dosage: 25 MG, 1X/DAY
  3. REVATIO [Suspect]
     Active Substance: SILDENAFIL CITRATE
     Dosage: 90 MG, DAILY (20MG 2 TABLETS IN THE MORNING ONE THE AFTERNOON AND 2 TABLETS AT NIGHT BY MOUTH)
     Route: 048
  4. REVATIO [Suspect]
     Active Substance: SILDENAFIL CITRATE
     Dosage: 100 MG, DAILY(PT TAKES MED Q8HRS)/ (40 MG IN AM, 20 MG IN AFTERNOON, 40 MG IN EVENING)
  5. SPIRONOLACTONE. [Concomitant]
     Active Substance: SPIRONOLACTONE
     Dosage: 12.5 MG, 1X/DAY
  6. REVATIO [Suspect]
     Active Substance: SILDENAFIL CITRATE
     Indication: PULMONARY HYPERTENSION
     Dosage: 20 MG, 3X/DAY
     Route: 048
     Dates: start: 2014
  7. MAG64 [Concomitant]
     Active Substance: CALCIUM CHLORIDE\MAGNESIUM CHLORIDE
     Indication: BLOOD MAGNESIUM DECREASED
     Dosage: 1 DF, 1X/DAY
  8. PRAVASTATIN SODIUM. [Concomitant]
     Active Substance: PRAVASTATIN SODIUM
     Indication: BLOOD CHOLESTEROL ABNORMAL
     Dosage: 20 MG, 1X/DAY
  9. OXYGEN. [Concomitant]
     Active Substance: OXYGEN
     Dosage: UNK (HAS IT ON ABOUT 12 HOURS A DAY TYPICALLY)
  10. QUINAPRIL. [Concomitant]
     Active Substance: QUINAPRIL
     Indication: BLOOD PRESSURE ABNORMAL
     Dosage: 10 MG, 1X/DAY
  11. BABY ASPIRIN [Concomitant]
     Active Substance: ASPIRIN
     Dosage: UNK UNK, 1X/DAY
  12. FUROSEMIDE. [Concomitant]
     Active Substance: FUROSEMIDE
     Indication: FLUID RETENTION
     Dosage: 20 MG, 1X/DAY

REACTIONS (13)
  - Cardiac murmur [Unknown]
  - Oxygen saturation decreased [Unknown]
  - Product use issue [Unknown]
  - Intentional product misuse [Unknown]
  - Product prescribing error [Unknown]
  - Blood creatine abnormal [Unknown]
  - Confusional state [Unknown]
  - Food poisoning [Unknown]
  - Product dose omission [Unknown]
  - Renal impairment [Unknown]
  - Dyspnoea [Unknown]
  - Hepatic function abnormal [Unknown]
  - Feeling abnormal [Unknown]
